FAERS Safety Report 10700332 (Version 1)
Quarter: 2014Q4

REPORT INFORMATION
  Report Type: Spontaneous
  Country: US (occurrence: None)
  Receive Date: 20141223
  Receipt Date: 20141223
  Transmission Date: 20150529
  Serious: No
  Sender: FDA-Public Use
  Company Number: 1000071249

PATIENT
  Age: 53 Year
  Sex: Male

DRUGS (1)
  1. LINZESS [Suspect]
     Active Substance: LINACLOTIDE
     Indication: CONSTIPATION
     Route: 048
     Dates: start: 201409, end: 2014

REACTIONS (3)
  - Renal pain [None]
  - Blood urine present [None]
  - Off label use [None]

NARRATIVE: CASE EVENT DATE: 201409
